FAERS Safety Report 24050141 (Version 2)
Quarter: 2024Q4

REPORT INFORMATION
  Report Type: Spontaneous
  Country: GB (occurrence: GB)
  Receive Date: 20240704
  Receipt Date: 20241120
  Transmission Date: 20250115
  Serious: Yes (Hospitalization, Other)
  Sender: RECORDATI
  Company Number: GB-RECORDATI-2024004872

PATIENT

DRUGS (5)
  1. CYSTEAMINE [Suspect]
     Active Substance: CYSTEAMINE
     Indication: Cystinosis
     Dosage: 650 MG, QID
  2. CYSTEAMINE [Suspect]
     Active Substance: CYSTEAMINE
     Dosage: 200 MG, QID
  3. CYSTEAMINE [Suspect]
     Active Substance: CYSTEAMINE
     Indication: Cystinosis
  4. SERTRALINE [Concomitant]
     Active Substance: SERTRALINE HYDROCHLORIDE
     Indication: Anxiety
  5. SERTRALINE [Concomitant]
     Active Substance: SERTRALINE HYDROCHLORIDE
     Indication: Depression

REACTIONS (9)
  - Gastrointestinal haemorrhage [Recovered/Resolved]
  - Toxicity to various agents [Unknown]
  - Encephalopathy [Recovered/Resolved]
  - Quadriparesis [Recovered/Resolved]
  - Trismus [Recovered/Resolved]
  - Hyperreflexia [Recovered/Resolved]
  - Blood lactic acid increased [Recovered/Resolved]
  - Copper deficiency [Recovered/Resolved]
  - Ceruloplasmin decreased [Recovered/Resolved]
